FAERS Safety Report 10438387 (Version 2)
Quarter: 2014Q3

REPORT INFORMATION
  Report Type: Report from Study
  Country: AU (occurrence: AU)
  Receive Date: 20140908
  Receipt Date: 20140923
  Transmission Date: 20150326
  Serious: Yes (Hospitalization, Other)
  Sender: FDA-Public Use
  Company Number: PHHY2014AU107493

PATIENT
  Age: 60 Year
  Sex: Female

DRUGS (6)
  1. FLUOXETINE [Concomitant]
     Active Substance: FLUOXETINE\FLUOXETINE HYDROCHLORIDE
     Dosage: 40 MG, MANE
  2. OLANZAPINE. [Concomitant]
     Active Substance: OLANZAPINE
     Dosage: 5 MG, NOCTE
  3. CLOZARIL [Suspect]
     Active Substance: CLOZAPINE
     Indication: SCHIZOPHRENIA
     Dosage: 575 MG,  (100 MG MANE, 150 MG MIDDAY AND 325 MG NOCTE)
     Route: 048
     Dates: start: 20030814
  4. OLANZAPINE. [Concomitant]
     Active Substance: OLANZAPINE
     Dosage: 5 MG, PRN
  5. SODIUM VALPROATE [Concomitant]
     Active Substance: VALPROATE SODIUM
     Dosage: 500 UKN, BID
  6. PANADOL [Concomitant]
     Active Substance: ACETAMINOPHEN
     Dosage: 665 MG, 2 TID

REACTIONS (6)
  - General physical health deterioration [Unknown]
  - Fall [Not Recovered/Not Resolved]
  - Malaise [Unknown]
  - Antipsychotic drug level increased [Recovering/Resolving]
  - Drug dispensing error [Unknown]
  - Fracture [Unknown]

NARRATIVE: CASE EVENT DATE: 20140815
